FAERS Safety Report 19324936 (Version 1)
Quarter: 2021Q2

REPORT INFORMATION
  Report Type: Report from Study
  Country: JP (occurrence: JP)
  Receive Date: 20210528
  Receipt Date: 20210528
  Transmission Date: 20210717
  Serious: Yes (Other)
  Sender: FDA-Public Use
  Company Number: JP-SUN PHARMACEUTICAL INDUSTRIES LTD-2021R1-298540

PATIENT
  Age: 64 Year
  Sex: Female

DRUGS (2)
  1. DOCETAXEL. [Concomitant]
     Active Substance: DOCETAXEL
     Indication: OVARIAN EPITHELIAL CANCER
     Dosage: 70 MG/M2 OVER 1 HOUR
     Route: 042
  2. CARBOPLATIN. [Suspect]
     Active Substance: CARBOPLATIN
     Indication: OVARIAN EPITHELIAL CANCER
     Dosage: 1?HOUR INTRAVENOUS INFUSION
     Route: 042

REACTIONS (5)
  - Bronchospasm [Not Recovered/Not Resolved]
  - Palmar erythema [Unknown]
  - Dyspnoea [Unknown]
  - Pruritus [Unknown]
  - Hypotension [Unknown]
